FAERS Safety Report 9491979 (Version 4)
Quarter: 2014Q1

REPORT INFORMATION
  Report Type: Report from Study
  Country: JP (occurrence: JP)
  Receive Date: 20130830
  Receipt Date: 20140203
  Transmission Date: 20141002
  Serious: Yes (Hospitalization, Other)
  Sender: FDA-Public Use
  Company Number: JP-PFIZER INC-2013242003

PATIENT
  Age: 62 Year
  Sex: Female

DRUGS (13)
  1. TOFACITINIB CITRATE [Suspect]
     Indication: RHEUMATOID ARTHRITIS
     Dosage: 5 MG, 2X/DAY
     Route: 048
     Dates: start: 20100129, end: 20101202
  2. METOLATE [Concomitant]
     Indication: RHEUMATOID ARTHRITIS
     Dosage: 2 MG ONCE A WEEK AFTER DINNER
     Route: 048
  3. FOLIAMIN [Concomitant]
     Indication: PROPHYLAXIS
     Dosage: 5 MG ONCE A WEEK AFTER DINNER
     Route: 048
  4. ATORVASTATIN [Concomitant]
     Indication: HYPERCHOLESTEROLAEMIA
     Dosage: 5 MG, 1X/DAY, AFTER DINNER
     Route: 048
     Dates: start: 20090707
  5. CELECOX [Concomitant]
     Indication: RHEUMATOID ARTHRITIS
     Dosage: 200 MG, 2X/DAY, AFTER BREAKFAST AND DINNER
     Route: 048
  6. FEMARA [Concomitant]
     Indication: PROPHYLAXIS
     Dosage: 2.5 MG, 1X/DAY, AFTER BREAKFAST
     Route: 048
  7. NOVAMIN [Concomitant]
     Dosage: 5 MG, 3X/DAY
     Route: 048
     Dates: start: 20130808
  8. LENDORMIN D [Concomitant]
     Indication: INSOMNIA
     Dosage: 0.25 MG, 1X/DAY
     Route: 048
     Dates: start: 20130808
  9. TRAMAL [Concomitant]
     Indication: PAIN
     Dosage: 25 MG, 2X/DAY
     Route: 048
     Dates: start: 20130808
  10. TRAMAL [Concomitant]
     Dosage: 50 MG, 2X/DAY
     Route: 048
     Dates: start: 20130827
  11. RINDERON-DP [Concomitant]
     Dosage: UNK
     Route: 062
     Dates: start: 20130808
  12. MS [Concomitant]
     Indication: LOCALISED COOLING THERAPY
     Dosage: UNK
     Route: 062
     Dates: start: 20130808
  13. LYRICA [Concomitant]
     Indication: ANALGESIC THERAPY
     Dosage: 2 DF, 1X/DAY (BEFORE BEDTIME)
     Route: 048
     Dates: start: 20130827

REACTIONS (2)
  - Breast cancer recurrent [Not Recovered/Not Resolved]
  - Diverticulum intestinal haemorrhagic [Recovered/Resolved]
